FAERS Safety Report 24953082 (Version 1)
Quarter: 2025Q1

REPORT INFORMATION
  Report Type: Spontaneous
  Country: US (occurrence: US)
  Receive Date: 20250211
  Receipt Date: 20250211
  Transmission Date: 20250409
  Serious: No
  Sender: ELI LILLY AND COMPANY
  Company Number: US-ELI_LILLY_AND_COMPANY-US202502004744

PATIENT
  Age: 83 Year
  Sex: Male

DRUGS (4)
  1. LYUMJEV [Suspect]
     Active Substance: INSULIN LISPRO-AABC
     Indication: Product used for unknown indication
     Route: 065
     Dates: start: 202409
  2. LYUMJEV [Suspect]
     Active Substance: INSULIN LISPRO-AABC
     Route: 065
     Dates: start: 202409
  3. INSULIN LISPRO [Suspect]
     Active Substance: INSULIN LISPRO
     Indication: Product used for unknown indication
     Route: 065
     Dates: start: 202501
  4. INSULIN LISPRO [Suspect]
     Active Substance: INSULIN LISPRO
     Route: 065
     Dates: start: 202501

REACTIONS (3)
  - Infusion site reaction [Unknown]
  - Blood glucose increased [Unknown]
  - Drug ineffective [Unknown]
